FAERS Safety Report 25410943 (Version 1)
Quarter: 2025Q2

REPORT INFORMATION
  Report Type: Spontaneous
  Country: PT (occurrence: PT)
  Receive Date: 20250609
  Receipt Date: 20250609
  Transmission Date: 20250717
  Serious: Yes (Other)
  Sender: JOHNSON AND JOHNSON
  Company Number: PT-PFIZER INC-202500111918

PATIENT
  Age: 58 Year
  Sex: Male

DRUGS (1)
  1. INFLIXIMAB [Suspect]
     Active Substance: INFLIXIMAB
     Indication: Crohn^s disease
     Route: 041

REACTIONS (3)
  - Pulmonary tuberculosis [Recovered/Resolved with Sequelae]
  - Pulmonary cavitation [Not Recovered/Not Resolved]
  - Paradoxical drug reaction [Unknown]
